FAERS Safety Report 12598468 (Version 2)
Quarter: 2016Q3

REPORT INFORMATION
  Report Type: Spontaneous
  Country: FR (occurrence: FR)
  Receive Date: 20160726
  Receipt Date: 20160909
  Transmission Date: 20161109
  Serious: Yes (Other)
  Sender: FDA-Public Use
  Company Number: FR-ALLERGAN-1663907US

PATIENT
  Age: 21 Year
  Sex: Male

DRUGS (6)
  1. LEPONEX [Suspect]
     Active Substance: CLOZAPINE
     Indication: ABNORMAL BEHAVIOUR
     Dosage: 2 DF
     Route: 048
  2. TRANXENE T-TAB [Concomitant]
     Active Substance: CLORAZEPATE DIPOTASSIUM
     Indication: ABNORMAL BEHAVIOUR
     Dosage: 10 MG, QD
  3. BOTOX [Suspect]
     Active Substance: ONABOTULINUMTOXINA
     Indication: DYSTONIA
     Dosage: 50 UNITS, SINGLE
     Route: 030
     Dates: start: 20160520, end: 20160520
  4. ATARAX [Suspect]
     Active Substance: HYDROXYZINE\HYDROXYZINE HYDROCHLORIDE
     Indication: ABNORMAL BEHAVIOUR
     Dosage: 275 MG, QD
     Route: 048
  5. RIVOTRIL [Concomitant]
     Active Substance: CLONAZEPAM
     Indication: ABNORMAL BEHAVIOUR
     Dosage: 9 MG, QD
  6. ZOPICLONE [Concomitant]
     Active Substance: ZOPICLONE
     Indication: POOR QUALITY SLEEP
     Dosage: UNK
     Route: 048

REACTIONS (2)
  - Urinary retention [Recovered/Resolved]
  - Off label use [Unknown]

NARRATIVE: CASE EVENT DATE: 20160521
